FAERS Safety Report 4718627-6 (Version None)
Quarter: 2005Q3

REPORT INFORMATION
  Report Type: 
  Country: None (occurrence: None)
  Receive Date: 20050720
  Receipt Date: 20050617
  Transmission Date: 20060218
  Serious: Yes (Hospitalization)
  Sender: FDA-Public Use
  Company Number: FR-GLAXOSMITHKLINE-B0384880A

PATIENT
  Age: 74 Year
  Sex: Female
  Weight: 84 kg

DRUGS (7)
  1. AVANDAMET [Suspect]
     Route: 048
     Dates: start: 20050512, end: 20050514
  2. AMAREL [Concomitant]
     Dosage: 6MG PER DAY
     Route: 048
  3. APROVEL [Concomitant]
     Indication: HYPERTENSION
     Dosage: 150MG PER DAY
     Route: 048
  4. LASIX [Concomitant]
     Indication: HYPERTENSION
     Dosage: 60MG PER DAY
     Route: 048
  5. DAFLON [Concomitant]
     Dosage: 500MG PER DAY
     Route: 048
  6. OMEPRAZOLE [Concomitant]
     Dosage: 20MG PER DAY
     Route: 048
  7. MOVICOL [Concomitant]
     Indication: CONSTIPATION
     Route: 048

REACTIONS (5)
  - CARDIAC FAILURE [None]
  - DYSPNOEA [None]
  - OEDEMA PERIPHERAL [None]
  - PULMONARY CONGESTION [None]
  - VENOUS THROMBOSIS [None]
